FAERS Safety Report 8612341-2 (Version None)
Quarter: 2012Q3

REPORT INFORMATION
  Report Type: 
  Country: None (occurrence: None)
  Receive Date: 20120810
  Receipt Date: 20120810
  Transmission Date: 20120928
  Serious: Yes (Other)
  Sender: FDA-Public Use
  Company Number: None

PATIENT
  Sex: Male

DRUGS (2)
  1. PROAIR HFA [Suspect]
  2. PROAIR HFA [Suspect]
     Indication: ASTHMA
     Dosage: 90 MCG EVERY 4 HOURS INHAL
     Route: 055
     Dates: start: 20120701, end: 20120806

REACTIONS (2)
  - DRUG EFFECT DECREASED [None]
  - INAPPROPRIATE SCHEDULE OF DRUG ADMINISTRATION [None]
